FAERS Safety Report 7534747-5 (Version None)
Quarter: 2011Q2

REPORT INFORMATION
  Report Type: 
  Country: None (occurrence: None)
  Receive Date: 20110609
  Receipt Date: 20080715
  Transmission Date: 20111010
  Serious: Yes (Death, Other)
  Sender: FDA-Public Use
  Company Number: PHHY2008GB13356

PATIENT
  Sex: Male

DRUGS (1)
  1. CLOZAPINE [Suspect]
     Indication: SCHIZOPHRENIA
     Dosage: 550 MG, QID
     Dates: start: 20000904

REACTIONS (4)
  - EMPHYSEMA [None]
  - NEOPLASM MALIGNANT [None]
  - DEATH [None]
  - BRONCHITIS [None]
